FAERS Safety Report 6551392-9 (Version None)
Quarter: 2010Q1

REPORT INFORMATION
  Report Type: 
  Country: None (occurrence: None)
  Receive Date: 20100126
  Receipt Date: 20100115
  Transmission Date: 20100710
  Serious: Yes (Hospitalization)
  Sender: FDA-Public Use
  Company Number: JP-ROCHE-627569

PATIENT
  Sex: Female
  Weight: 53.8 kg

DRUGS (4)
  1. ACTEMRA [Suspect]
     Indication: RHEUMATOID ARTHRITIS
     Route: 041
     Dates: start: 20081208, end: 20081208
  2. PROGRAF [Concomitant]
     Route: 048
  3. CELECOXIB [Concomitant]
     Route: 048
  4. BAKTAR [Concomitant]
     Dosage: FORM: ORAL FORMULATION (NOT OTHERWISE SPECIFIED)
     Route: 048

REACTIONS (1)
  - PNEUMONIA ASPIRATION [None]
